FAERS Safety Report 5280488-7 (Version None)
Quarter: 2007Q1

REPORT INFORMATION
  Report Type: 
  Country: None (occurrence: None)
  Receive Date: 20070329
  Receipt Date: 20070320
  Transmission Date: 20070707
  Serious: Yes (Hospitalization, Other)
  Sender: FDA-Public Use
  Company Number: ES-MERCK-0701ESP00023

PATIENT
  Age: 19 Year
  Sex: Female
  Weight: 46 kg

DRUGS (8)
  1. SINGULAIR [Suspect]
     Indication: ASTHMA
     Route: 048
     Dates: start: 20061215, end: 20061225
  2. DIGOXIN [Concomitant]
     Route: 065
  3. ACENOCOUMAROL [Concomitant]
     Route: 065
  4. PENICILLIN (UNSPECIFIED) [Concomitant]
     Route: 065
  5. BUDESONIDE AND FORMOTEROL FUMARATE [Concomitant]
     Route: 065
  6. IPRATROPIUM BROMIDE [Concomitant]
     Route: 065
  7. CAPTOPRIL [Concomitant]
     Route: 048
  8. [THERAPY UNSPECIFIED] [Concomitant]
     Route: 065

REACTIONS (4)
  - ARRHYTHMIA [None]
  - ATRIAL FIBRILLATION [None]
  - MALAISE [None]
  - SPEECH DISORDER [None]
